FAERS Safety Report 8271266-5 (Version None)
Quarter: 2012Q2

REPORT INFORMATION
  Report Type: 
  Country: None (occurrence: None)
  Receive Date: 20120406
  Receipt Date: 20120326
  Transmission Date: 20120825
  Serious: Yes (Death)
  Sender: FDA-Public Use
  Company Number: JP-2012-14687

PATIENT
  Age: 58 Year
  Sex: Male

DRUGS (1)
  1. PLETAL [Suspect]
     Dosage: , ORAL
     Route: 048
     Dates: start: 20060601

REACTIONS (1)
  - GASTROINTESTINAL HAEMORRHAGE [None]
